FAERS Safety Report 4794861-4 (Version None)
Quarter: 2005Q3

REPORT INFORMATION
  Report Type: 
  Country: None (occurrence: None)
  Receive Date: 20050914
  Receipt Date: 20040902
  Transmission Date: 20060218
  Serious: Yes (Death, Hospitalization)
  Sender: FDA-Public Use
  Company Number: 163-20785-04090097

PATIENT
  Age: 69 Year
  Sex: Male

DRUGS (11)
  1. THALOMID [Suspect]
     Indication: RENAL CELL CARCINOMA STAGE UNSPECIFIED
     Dosage: 200 MG, DAILY, ORAL : 150 MG, DAILY, ORAL
     Route: 048
     Dates: start: 20040404, end: 20040426
  2. THALOMID [Suspect]
     Indication: RENAL CELL CARCINOMA STAGE UNSPECIFIED
     Dosage: 200 MG, DAILY, ORAL : 150 MG, DAILY, ORAL
     Route: 048
     Dates: start: 20040427, end: 20040717
  3. INTERLEUKIN-2 (INTERLEUKIN-2) [Suspect]
     Indication: RENAL CELL CARCINOMA STAGE UNSPECIFIED
     Dosage: M-W-F , SUBCUTANEOUS
     Route: 058
     Dates: start: 20040404, end: 20040412
  4. INTERLEUKIN-2 (INTERLEUKIN-2) [Suspect]
     Indication: RENAL CELL CARCINOMA STAGE UNSPECIFIED
     Dosage: M-W-F , SUBCUTANEOUS
     Route: 058
     Dates: start: 20040427, end: 20040504
  5. PERCOCET [Concomitant]
  6. DURAGESIC-100 [Concomitant]
  7. DILAUDID [Concomitant]
  8. AVASTIN [Concomitant]
  9. ARANESP [Concomitant]
  10. PREVACID [Concomitant]
  11. QUESTRAN (COLESYTRAMINE) [Concomitant]

REACTIONS (12)
  - ABDOMINAL PAIN [None]
  - BILE DUCT OBSTRUCTION [None]
  - CHEST PAIN [None]
  - CONSTIPATION [None]
  - DISEASE PROGRESSION [None]
  - DYSPNOEA EXERTIONAL [None]
  - JAUNDICE [None]
  - OEDEMA PERIPHERAL [None]
  - PLEURAL EFFUSION [None]
  - PRURITUS [None]
  - THROMBOCYTOPENIA [None]
  - TREMOR [None]
